FAERS Safety Report 5903170-9 (Version None)
Quarter: 2008Q3

REPORT INFORMATION
  Report Type: 
  Country: None (occurrence: None)
  Receive Date: 20080926
  Receipt Date: 20080919
  Transmission Date: 20090109
  Serious: Yes (Life-Threatening)
  Sender: FDA-Public Use
  Company Number: 97699

PATIENT
  Age: 53 Year
  Sex: Male

DRUGS (2)
  1. NAPROXEN [Suspect]
     Dosage: 500 MG/BID/ORAL
     Route: 048
  2. SERTRALINE [Suspect]
     Indication: MAJOR DEPRESSION
     Dosage: 100 MG/QD/ORAL
     Route: 048

REACTIONS (7)
  - CARCINOMA IN SITU [None]
  - DYSPNOEA [None]
  - HAEMATOMA [None]
  - HAEMORRHAGE [None]
  - MOUTH ULCERATION [None]
  - POST PROCEDURAL COMPLICATION [None]
  - SQUAMOUS CELL CARCINOMA [None]
